FAERS Safety Report 18627755 (Version 5)
Quarter: 2021Q1

REPORT INFORMATION
  Report Type: Report from Study
  Country: AU (occurrence: AU)
  Receive Date: 20201217
  Receipt Date: 20210319
  Transmission Date: 20210419
  Serious: Yes (Hospitalization)
  Sender: FDA-Public Use
  Company Number: AU-PFIZER INC-2020477275

PATIENT
  Age: 68 Year
  Sex: Female

DRUGS (25)
  1. PALBOCICLIB [Suspect]
     Active Substance: PALBOCICLIB
     Dosage: 75 MG, DAILY, DAY 1?21
     Route: 048
     Dates: start: 20201119, end: 20201202
  2. PALBOCICLIB [Suspect]
     Active Substance: PALBOCICLIB
     Dosage: 75 MG, DAILY, DAY 1?21
     Route: 048
     Dates: start: 20201209, end: 20201224
  3. ENCORAFENIB [Suspect]
     Active Substance: ENCORAFENIB
     Indication: METASTATIC MALIGNANT MELANOMA
     Dosage: 450 MG, DAILY
     Route: 048
     Dates: start: 20201029, end: 20201111
  4. PREGABALIN. [Concomitant]
     Active Substance: PREGABALIN
     Indication: RESTLESS LEGS SYNDROME
     Dosage: 50 MG, DAILY
     Route: 048
     Dates: start: 2014
  5. MALTOFER FOL [Concomitant]
     Active Substance: FOLIC ACID\IRON POLYMALTOSE
     Indication: MINERAL SUPPLEMENTATION
     Dosage: 370 MG, DAILY
     Route: 048
     Dates: start: 20201012
  6. SIFROL [Concomitant]
     Active Substance: PRAMIPEXOLE
     Indication: RESTLESS LEGS SYNDROME
     Dosage: 25 MG
     Route: 048
     Dates: start: 2016
  7. STEMETIL [PROCHLORPERAZINE EDISYLATE] [Concomitant]
     Active Substance: PROCHLORPERAZINE EDISYLATE
     Indication: VOMITING
  8. ENCORAFENIB [Suspect]
     Active Substance: ENCORAFENIB
     Dosage: 200 MG
     Dates: start: 20201209, end: 20201224
  9. BINIMETINIB [Suspect]
     Active Substance: BINIMETINIB
     Indication: METASTATIC MALIGNANT MELANOMA
     Dosage: 45 MG, 2X/DAY
     Route: 048
     Dates: start: 20201029, end: 20201111
  10. BINIMETINIB [Suspect]
     Active Substance: BINIMETINIB
     Dosage: 30 MG, 2X/DAY
     Dates: start: 20201119, end: 20201202
  11. PALBOCICLIB [Suspect]
     Active Substance: PALBOCICLIB
     Indication: METASTATIC MALIGNANT MELANOMA
     Dosage: 75 MG, 21 DAYS ON THEN 7 DAYS OFF OF 28 DAY CYCLE
     Route: 048
     Dates: start: 20201029, end: 20201111
  12. RHINOCORT [Concomitant]
     Active Substance: BUDESONIDE
     Indication: SEASONAL ALLERGY
     Dosage: 1 SPRAY PRN
     Route: 045
     Dates: start: 1980
  13. VITAMINE D [Concomitant]
     Active Substance: CHOLECALCIFEROL
     Indication: OSTEOARTHRITIS
     Dosage: 1 DF, DAILY
     Route: 048
     Dates: start: 20200813
  14. BINIMETINIB [Suspect]
     Active Substance: BINIMETINIB
     Dosage: 15 MG
     Dates: start: 20201209, end: 20201224
  15. EYE DROPS [NAPHAZOLINE HYDROCHLORIDE] [Concomitant]
     Indication: DRY EYE
     Dosage: 1 DROP BOTH EYES, NOCTE/PRN
     Route: 047
     Dates: start: 20201013
  16. DESVENLAFAXINE. [Concomitant]
     Active Substance: DESVENLAFAXINE
     Indication: AFFECTIVE DISORDER
     Dosage: 100 MG, DAILY
     Route: 048
     Dates: start: 20200401
  17. PREXUM [Concomitant]
     Active Substance: PERINDOPRIL ERBUMINE
     Indication: HYPERTENSION
     Dosage: 10 MG, DAILY
     Route: 048
     Dates: start: 20200813
  18. STEMETIL [PROCHLORPERAZINE EDISYLATE] [Concomitant]
     Active Substance: PROCHLORPERAZINE EDISYLATE
     Indication: NAUSEA
     Dosage: 5 MG, 3X/DAY
     Route: 048
     Dates: start: 20201109
  19. ENCORAFENIB [Suspect]
     Active Substance: ENCORAFENIB
     Dosage: 300 MG, DAILY
     Dates: start: 20201119, end: 20201202
  20. XALATAN [Concomitant]
     Active Substance: LATANOPROST
     Indication: BORDERLINE GLAUCOMA
     Dosage: 1 DROP BOTH EYES NOCTE/PRN
     Route: 047
     Dates: start: 20180201
  21. MIRABEGRON [Concomitant]
     Active Substance: MIRABEGRON
     Indication: BLADDER DISORDER
     Dosage: 50 MG, DAILY
     Route: 048
     Dates: start: 2015
  22. ESOMEPRAZOLE. [Concomitant]
     Active Substance: ESOMEPRAZOLE MAGNESIUM
     Indication: GASTROOESOPHAGEAL REFLUX DISEASE
     Dosage: 40 MG, 1X/DAY
     Route: 048
     Dates: start: 20190201
  23. HIPREX [CHLORTALIDONE] [Concomitant]
     Indication: INFECTION PROPHYLAXIS
     Dosage: 1000 MG, 2X/DAY
     Route: 048
     Dates: start: 2018
  24. OVESTIN [Concomitant]
     Active Substance: ESTRIOL
     Indication: BLADDER DISORDER
     Dosage: 1 DF
     Route: 061
     Dates: start: 2016
  25. SYMBICORT [Concomitant]
     Active Substance: BUDESONIDE\FORMOTEROL FUMARATE DIHYDRATE
     Indication: ASTHMA
     Dosage: 2 PUFF BD
     Route: 055
     Dates: start: 20201111

REACTIONS (1)
  - Hyponatraemia [Recovered/Resolved]

NARRATIVE: CASE EVENT DATE: 20201202
